FAERS Safety Report 8766817 (Version 2)
Quarter: 2012Q4

REPORT INFORMATION
  Report Type: 
  Country: GB (occurrence: GB)
  Receive Date: 20120904
  Receipt Date: 20121220
  Transmission Date: 20130627
  Serious: Yes (Other)
  Sender: FDA-Public Use
  Company Number: GB-JNJFOC-20120814163

PATIENT
  Age: 58 Year
  Sex: Male

DRUGS (1)
  1. XEPLION [Suspect]
     Indication: BIPOLAR DISORDER
     Route: 030
     Dates: start: 20120817

REACTIONS (1)
  - Mania [Unknown]
